FAERS Safety Report 6243482-5 (Version None)
Quarter: 2009Q2

REPORT INFORMATION
  Report Type: 
  Country: None (occurrence: None)
  Receive Date: 20090624
  Receipt Date: 20090619
  Transmission Date: 20091009
  Serious: Yes (Hospitalization)
  Sender: FDA-Public Use
  Company Number: IT-AVENTIS-200912119EU

PATIENT
  Age: 81 Year
  Sex: Female

DRUGS (5)
  1. LASIX [Suspect]
     Route: 048
     Dates: start: 20080402, end: 20090316
  2. RISPERDAL [Suspect]
     Route: 048
     Dates: start: 20080707, end: 20090316
  3. CARBOLITHIUM [Suspect]
     Route: 048
     Dates: start: 20080718, end: 20090316
  4. CLODRONIC ACID [Concomitant]
  5. AKINETON [Concomitant]

REACTIONS (3)
  - CATATONIA [None]
  - NEUROLEPTIC MALIGNANT SYNDROME [None]
  - PSYCHOMOTOR RETARDATION [None]
